FAERS Safety Report 23713472 (Version 1)
Quarter: 2024Q2

REPORT INFORMATION
  Report Type: Report from Study
  Country: CA (occurrence: CA)
  Receive Date: 20240405
  Receipt Date: 20240405
  Transmission Date: 20240716
  Serious: Yes (Death, Other)
  Sender: FDA-Public Use
  Company Number: CA-JAZZ PHARMACEUTICALS-2024-CA-004265

PATIENT
  Age: 82 Year
  Sex: Male

DRUGS (11)
  1. XYREM [Suspect]
     Active Substance: SODIUM OXYBATE
     Indication: Cataplexy
     Dosage: 5.75 GRAM
     Route: 048
     Dates: start: 2017
  2. XYREM [Suspect]
     Active Substance: SODIUM OXYBATE
     Dosage: 2.25 GRAM, BID
     Route: 048
     Dates: start: 20101105, end: 20101109
  3. XYREM [Suspect]
     Active Substance: SODIUM OXYBATE
     Dosage: 3 GRAM, BID
     Dates: start: 20101110
  4. XYREM [Suspect]
     Active Substance: SODIUM OXYBATE
     Dosage: 3 GRAM, BID
     Route: 048
  5. BISOPROLOL FUMARATE [Concomitant]
     Active Substance: BISOPROLOL FUMARATE
  6. CRESTOR [Concomitant]
     Active Substance: ROSUVASTATIN CALCIUM
  7. DEXILANT [Concomitant]
     Active Substance: DEXLANSOPRAZOLE
  8. TRANDOLAPRIL [Concomitant]
     Active Substance: TRANDOLAPRIL
  9. TYLENOL [Concomitant]
     Active Substance: ACETAMINOPHEN
  10. XARELTO [Concomitant]
     Active Substance: RIVAROXABAN
  11. ALERTEC [MODAFINIL] [Concomitant]

REACTIONS (2)
  - Death [Fatal]
  - Cerebral disorder [Unknown]

NARRATIVE: CASE EVENT DATE: 20240329
